FAERS Safety Report 13242699 (Version 2)
Quarter: 2017Q2

REPORT INFORMATION
  Report Type: Spontaneous
  Country: CA (occurrence: CA)
  Receive Date: 20170216
  Receipt Date: 20170605
  Transmission Date: 20170830
  Serious: Yes (Hospitalization, Other)
  Sender: FDA-Public Use
  Company Number: CA-SA-2017SA025355

PATIENT
  Sex: Male
  Weight: 97 kg

DRUGS (3)
  1. ONDANSETRON [Concomitant]
     Active Substance: ONDANSETRON
     Route: 048
  2. DEXAMETHASONE. [Concomitant]
     Active Substance: DEXAMETHASONE
     Route: 042
  3. ELOXATIN [Suspect]
     Active Substance: OXALIPLATIN
     Indication: COLON CANCER
     Dosage: 1 EVERY 14 DAYS
     Route: 042

REACTIONS (6)
  - Oxygen saturation decreased [Recovered/Resolved]
  - Erythema [Recovered/Resolved]
  - Pruritus [Unknown]
  - Sensation of foreign body [Recovered/Resolved]
  - Blood pressure decreased [Recovered/Resolved]
  - Generalised erythema [Recovered/Resolved]
